FAERS Safety Report 13001200 (Version 1)
Quarter: 2016Q4

REPORT INFORMATION
  Report Type: Spontaneous
  Country: IT (occurrence: IT)
  Receive Date: 20161206
  Receipt Date: 20161206
  Transmission Date: 20170207
  Serious: Yes (Hospitalization)
  Sender: FDA-Public Use
  Company Number: IT-ABBVIE-16P-083-1798973-00

PATIENT
  Age: 33 Month
  Sex: Male

DRUGS (4)
  1. VALPROATE SODIUM. [Suspect]
     Active Substance: VALPROATE SODIUM
     Route: 048
  2. FRISIUM (CLOBAZAM) [Concomitant]
     Active Substance: CLOBAZAM
     Indication: PRODUCT USED FOR UNKNOWN INDICATION
     Route: 065
     Dates: start: 20160826
  3. VALPROATE SODIUM. [Suspect]
     Active Substance: VALPROATE SODIUM
     Route: 048
  4. VALPROATE SODIUM. [Suspect]
     Active Substance: VALPROATE SODIUM
     Indication: EPILEPSY CONGENITAL
     Route: 048
     Dates: start: 20160723, end: 20161102

REACTIONS (2)
  - Aggression [Recovering/Resolving]
  - Decreased appetite [Recovering/Resolving]

NARRATIVE: CASE EVENT DATE: 20161102
